FAERS Safety Report 7301805-X (Version None)
Quarter: 2011Q1

REPORT INFORMATION
  Report Type: 
  Country: None (occurrence: None)
  Receive Date: 20110218
  Receipt Date: 20110210
  Transmission Date: 20110831
  Serious: Yes (Hospitalization)
  Sender: FDA-Public Use
  Company Number: B0699893A

PATIENT
  Age: 64 Year
  Sex: Male

DRUGS (2)
  1. PAXIL [Suspect]
     Indication: OBSESSIVE-COMPULSIVE DISORDER
     Dosage: 20MG PER DAY
     Route: 048
     Dates: start: 20110114
  2. LENDORMIN [Concomitant]
     Route: 048

REACTIONS (1)
  - ULCER HAEMORRHAGE [None]
